FAERS Safety Report 19943563 (Version 3)
Quarter: 2022Q4

REPORT INFORMATION
  Report Type: Spontaneous
  Country: DE (occurrence: DE)
  Receive Date: 20211012
  Receipt Date: 20221212
  Transmission Date: 20230112
  Serious: Yes (Hospitalization)
  Sender: FDA-Public Use
  Company Number: DE-ADRED-06420-01

PATIENT
  Age: 80 Year
  Sex: Female

DRUGS (19)
  1. TORSEMIDE [Suspect]
     Active Substance: TORSEMIDE
     Dosage: 10 MILLIGRAM (10 MG, 2-1-0-0, TABLET)
     Route: 065
  2. SITAGLIPTIN [Concomitant]
     Active Substance: SITAGLIPTIN
     Dosage: 25 MILLIGRAM (1-0-1-0, TABLET)
     Route: 065
  3. SPIRIVA RESPIMAT [Concomitant]
     Active Substance: TIOTROPIUM BROMIDE
     Dosage: UNK (2.5 ?G, 1-0-0-0, INHALATION SOLUTION)
     Route: 065
  4. ZOLPIDEM [Concomitant]
     Active Substance: ZOLPIDEM TARTRATE
     Dosage: UNK (10 MG, 0-0-0-1, TABLET)
     Route: 065
  5. PHENPROCOUMON [Concomitant]
     Active Substance: PHENPROCOUMON
     Dosage: UNK (3 MG, BY INR, TABLET)
     Route: 065
  6. AMLODIPINE BESYLATE [Concomitant]
     Active Substance: AMLODIPINE BESYLATE
     Dosage: UNK (5 MG, 1-0-1-0, TABLET)
     Route: 065
  7. CETIRIZINE HYDROCHLORIDE [Concomitant]
     Active Substance: CETIRIZINE HYDROCHLORIDE
     Dosage: UNK (10 MG, 1-0-1-0, TABLET)
     Route: 065
  8. ONDANSETRON [Concomitant]
     Active Substance: ONDANSETRON
     Dosage: UNK (4 MG, 0-0-0.5-0, TABLET)
     Route: 065
  9. LEVOTHYROXINUM NATRICUM [Concomitant]
     Dosage: UNK (0.1 MG, 1-0-0-0, TABLET)
     Route: 065
  10. URAPIDIL [Concomitant]
     Active Substance: URAPIDIL
     Dosage: UNK (60 MG, 1-1-1-0, RETARD-CAPSULE)
     Route: 065
  11. MELPERONE [Concomitant]
     Active Substance: MELPERONE
     Dosage: UNK (25 MG, 0-0-1-0, TABLET)
     Route: 065
  12. METAMIZOL [Concomitant]
     Active Substance: METAMIZOLE SODIUM
     Dosage: UNK (500 MG, 1-1-1-0, TABLET)
     Route: 065
  13. PREGABALIN [Concomitant]
     Active Substance: PREGABALIN
     Dosage: UNK (150 MG, 0-0-1-0, CAPSULE)
     Route: 065
  14. SIMVASTATIN [Concomitant]
     Active Substance: SIMVASTATIN
     Dosage: UNK (20 MG, 0-0-1-0, TABLET)
     Route: 065
  15. PANTOPRAZOLE SODIUM [Concomitant]
     Active Substance: PANTOPRAZOLE SODIUM
     Dosage: UNK (40 MG, 1-0-1-0, TABLET)
     Route: 065
  16. ALBUTEROL [Concomitant]
     Active Substance: ALBUTEROL
     Dosage: UNK (0.1 MG, IF NECESSARY, METERED DOSE AEROSOL)
     Route: 065
  17. INSULIN GLARGINE [Concomitant]
     Active Substance: INSULIN GLARGINE
     Dosage: UNK (8 IE, 0-0-1-0, SOLUTION FOR INJECTION/INFUSION)
     Route: 065
  18. METOPROLOL [Concomitant]
     Active Substance: METOPROLOL
     Dosage: UNK (95 MG, 1-0-1-0, RETARD-TABLET)
     Route: 065
  19. CANDESARTAN CILEXETIL [Concomitant]
     Active Substance: CANDESARTAN CILEXETIL
     Dosage: UNK (16 MG, 1-0-1-0, TABLET
     Route: 065

REACTIONS (4)
  - Renal impairment [Recovering/Resolving]
  - Renal failure [Unknown]
  - Hypertensive crisis [Unknown]
  - Hyponatraemia [Unknown]

NARRATIVE: CASE EVENT DATE: 20210224
